FAERS Safety Report 7973036-1 (Version None)
Quarter: 2011Q4

REPORT INFORMATION
  Report Type: 
  Country: None (occurrence: None)
  Receive Date: 20111209
  Receipt Date: 20111125
  Transmission Date: 20120403
  Serious: Yes (Death, Other)
  Sender: FDA-Public Use
  Company Number: 2011AP002844

PATIENT
  Age: 69 Year
  Sex: Female

DRUGS (3)
  1. AMIODARONE HCL [Suspect]
     Indication: ATRIAL FIBRILLATION
     Dosage: IV
     Route: 042
  2. AMIODARONE HYDROCHLORIDE [Suspect]
     Indication: ATRIAL FIBRILLATION
     Dosage: 400 MG; TID; PO
     Route: 048
  3. COLCHICINE [Suspect]
     Indication: PRODUCT USED FOR UNKNOWN INDICATION
     Dosage: 0.6 MG; BID; PO
     Route: 048

REACTIONS (9)
  - TOXICITY TO VARIOUS AGENTS [None]
  - NAUSEA [None]
  - CARDIOGENIC SHOCK [None]
  - DRUG INTERACTION [None]
  - CARDIAC ARREST [None]
  - DIARRHOEA [None]
  - MULTI-ORGAN FAILURE [None]
  - LEUKOPENIA [None]
  - VOMITING [None]
